FAERS Safety Report 10270316 (Version 1)
Quarter: 2014Q2

REPORT INFORMATION
  Report Type: Spontaneous
  Country: US (occurrence: None)
  Receive Date: 20140627
  Receipt Date: 20140627
  Transmission Date: 20141212
  Serious: Yes (Hospitalization)
  Sender: FDA-Public Use
  Company Number: None

PATIENT
  Age: 62 Year
  Sex: Female
  Weight: 88.2 kg

DRUGS (27)
  1. SIMEPREVIR [Suspect]
     Indication: HEPATITIS
     Route: 048
     Dates: start: 20140328
  2. SOFOSBUVIR [Suspect]
     Route: 048
     Dates: start: 20140328
  3. IMDUR [Concomitant]
  4. NITROSTAT [Concomitant]
  5. DEMADEX [Concomitant]
  6. LOSARTAN [Concomitant]
  7. TYLENOL [Concomitant]
  8. LANTUS [Concomitant]
  9. SYNTHROID [Concomitant]
  10. LACTULOSE [Concomitant]
  11. ALBUTEROL [Concomitant]
  12. OMAPRAZOLE [Concomitant]
  13. MIRAPAX [Concomitant]
  14. TUMS [Concomitant]
  15. NOVOLOG [Concomitant]
  16. ATIVAN [Concomitant]
  17. CALCIUM [Concomitant]
  18. PROZOC [Concomitant]
  19. RIFAXIMIN [Concomitant]
  20. MULTIVITAMINS [Concomitant]
  21. MOPHINE [Concomitant]
  22. ZOFRAN [Concomitant]
  23. ASPIRIN [Concomitant]
  24. IPRATROPIUM [Concomitant]
  25. LEVAQUIN [Concomitant]
  26. PREDNISONE [Concomitant]
  27. DICLOFENAC [Concomitant]

REACTIONS (3)
  - Pneumonia viral [None]
  - Pulmonary oedema [None]
  - Pain [None]
